FAERS Safety Report 5047690-0 (Version None)
Quarter: 2006Q3

REPORT INFORMATION
  Report Type: 
  Country: None (occurrence: None)
  Receive Date: 20060706
  Receipt Date: 20060706
  Transmission Date: 20061208
  Serious: No
  Sender: FDA-Public Use
  Company Number: None

PATIENT
  Sex: Male
  Weight: 81.1939 kg

DRUGS (2)
  1. ENBREL [Suspect]
     Indication: PSORIATIC ARTHROPATHY
     Dosage: 25 MG SUBCU 2 X WK
     Route: 058
     Dates: start: 20030219
  2. METHOTREXATE [Suspect]
     Indication: PSORIATIC ARTHROPATHY
     Dosage: 7.5 MG PO WEEKLY
     Route: 048
     Dates: start: 20000101

REACTIONS (2)
  - MELANOCYTIC NAEVUS [None]
  - SKIN LESION [None]
